FAERS Safety Report 14822818 (Version 4)
Quarter: 2018Q4

REPORT INFORMATION
  Report Type: Spontaneous
  Country: US (occurrence: US)
  Receive Date: 20180427
  Receipt Date: 20181002
  Transmission Date: 20190204
  Serious: No
  Sender: FDA-Public Use
  Company Number: US-PFIZER INC-2018170432

PATIENT
  Age: 66 Year
  Sex: Male

DRUGS (1)
  1. XELJANZ XR [Suspect]
     Active Substance: TOFACITINIB CITRATE
     Dosage: 11 MG, UNK
     Dates: start: 201712

REACTIONS (6)
  - Musculoskeletal stiffness [Recovered/Resolved]
  - Limb injury [Unknown]
  - Nasopharyngitis [Unknown]
  - Tremor [Unknown]
  - Dyspnoea [Unknown]
  - Dysphagia [Unknown]
